FAERS Safety Report 14403005 (Version 9)
Quarter: 2024Q2

REPORT INFORMATION
  Report Type: Spontaneous
  Country: US (occurrence: US)
  Receive Date: 20180117
  Receipt Date: 20240529
  Transmission Date: 20240716
  Serious: Yes (Other)
  Sender: FDA-Public Use
  Company Number: US-PFIZER INC-2018020050

PATIENT
  Age: 65 Year
  Sex: Female
  Weight: 104 kg

DRUGS (20)
  1. XELJANZ XR [Suspect]
     Active Substance: TOFACITINIB CITRATE
     Indication: Rheumatoid arthritis
     Dosage: 11 MG, 1X/DAY
     Route: 048
     Dates: start: 201709
  2. XELJANZ XR [Suspect]
     Active Substance: TOFACITINIB CITRATE
     Dosage: 11 MG, WEEKLY (6 T ONCE A WEEK)
     Route: 048
  3. NAPROXEN [Concomitant]
     Active Substance: NAPROXEN
     Indication: Rheumatoid arthritis
     Dosage: 500 MG, 2X/DAY
     Route: 048
     Dates: start: 2010
  4. METHOTREXATE [Concomitant]
     Active Substance: METHOTREXATE
     Indication: Rheumatoid arthritis
     Dosage: 10/6.25, WEEKLY (6 TABLETS ONCE A WEEK)
     Route: 048
     Dates: start: 2012
  5. HYDROXYCHLOROQUINE [Concomitant]
     Active Substance: HYDROXYCHLOROQUINE
     Indication: Rheumatoid arthritis
     Dosage: 200 MG, 1X/DAY
     Route: 048
     Dates: start: 2010
  6. FOLIC ACID [Concomitant]
     Active Substance: FOLIC ACID
     Indication: Rheumatoid arthritis
     Dosage: 1 MG, 1X/DAY
     Route: 048
     Dates: start: 2012
  7. TRAMADOL [Concomitant]
     Active Substance: TRAMADOL\TRAMADOL HYDROCHLORIDE
     Indication: Arthritis
     Dosage: 50 MG, 2X/DAY
     Route: 048
     Dates: start: 2010
  8. LOVASTATIN [Concomitant]
     Active Substance: LOVASTATIN
     Indication: Blood pressure abnormal
     Dosage: 20MG TABLET, 1 TABLET AT BEDTIME BY MOUTH
     Route: 048
     Dates: start: 2015
  9. BISOPROLOL FUMARATE\HYDROCHLOROTHIAZIDE [Concomitant]
     Active Substance: BISOPROLOL FUMARATE\HYDROCHLOROTHIAZIDE
     Indication: Blood pressure abnormal
     Dosage: [BISOPROLOL FUMARATE: 10MG]/[HYDROCHLOROTHIAZIDE: 6.25MG]
     Route: 048
     Dates: start: 2010, end: 201901
  10. LISINOPRIL [Concomitant]
     Active Substance: LISINOPRIL
     Indication: Blood pressure abnormal
     Dosage: 20 MG, 1X/DAY
     Route: 048
     Dates: start: 2010
  11. AMLODIPINE BESYLATE [Concomitant]
     Active Substance: AMLODIPINE BESYLATE
     Indication: Blood pressure abnormal
     Dosage: 5 MG, 1X/DAY
     Route: 048
     Dates: start: 2015
  12. CLONIDINE [Concomitant]
     Active Substance: CLONIDINE
     Indication: Blood pressure abnormal
     Dosage: 0.2 MG, 2X/DAY
     Route: 048
     Dates: start: 2010
  13. ASPIRIN [Concomitant]
     Active Substance: ASPIRIN
     Indication: Blood pressure abnormal
     Dosage: 81 MG, 1X/DAY
     Route: 048
     Dates: start: 2008
  14. CHOLECALCIFEROL [Concomitant]
     Active Substance: CHOLECALCIFEROL
     Dosage: UNK
     Dates: start: 201801
  15. CHLORTHALIDONE [Concomitant]
     Active Substance: CHLORTHALIDONE
     Indication: Hypertension
     Dosage: 12.5 MG, 2X/DAY
     Dates: start: 201901
  16. LABETALOL HYDROCHLORIDE [Concomitant]
     Active Substance: LABETALOL\LABETALOL HYDROCHLORIDE
     Indication: Hypertension
     Dosage: 0.5 DF, 2X/DAY
     Route: 048
     Dates: start: 20180306
  17. PRAVASTATIN [Concomitant]
     Active Substance: PRAVASTATIN
     Dosage: UNK
  18. HERBALS\TURMERIC [Concomitant]
     Active Substance: HERBALS\TURMERIC
     Dosage: UNK
  19. ADEMETIONINE [Concomitant]
     Active Substance: ADEMETIONINE
     Dosage: UNK
  20. MONTELUKAST [Concomitant]
     Active Substance: MONTELUKAST SODIUM
     Dosage: UNK

REACTIONS (10)
  - Lower limb fracture [Recovered/Resolved]
  - Pain in extremity [Recovering/Resolving]
  - Gait inability [Recovering/Resolving]
  - Thrombosis [Unknown]
  - Patella fracture [Recovered/Resolved]
  - Joint swelling [Recovering/Resolving]
  - Muscle spasms [Recovered/Resolved]
  - Peripheral swelling [Unknown]
  - Muscle tightness [Unknown]
  - Drug hypersensitivity [Unknown]

NARRATIVE: CASE EVENT DATE: 20171201
